FAERS Safety Report 18365945 (Version 5)
Quarter: 2021Q1

REPORT INFORMATION
  Report Type: Spontaneous
  Country: US (occurrence: US)
  Receive Date: 20201009
  Receipt Date: 20210108
  Transmission Date: 20210419
  Serious: No
  Sender: FDA-Public Use
  Company Number: US-PFIZER INC-2020387516

PATIENT
  Age: 69 Year
  Sex: Female
  Weight: 81.63 kg

DRUGS (1)
  1. PHENYTOIN SODIUM. [Suspect]
     Active Substance: PHENYTOIN SODIUM
     Indication: SEIZURE
     Dosage: UNK
     Dates: start: 1988

REACTIONS (2)
  - Drug ineffective [Unknown]
  - Anticonvulsant drug level below therapeutic [Unknown]
